FAERS Safety Report 26074026 (Version 2)
Quarter: 2025Q4

REPORT INFORMATION
  Report Type: Spontaneous
  Country: US (occurrence: US)
  Receive Date: 20251121
  Receipt Date: 20251125
  Transmission Date: 20260118
  Serious: No
  Sender: NOVARTIS
  Company Number: US-002147023-NVSC2025US179471

PATIENT

DRUGS (1)
  1. RHAPSIDO [Suspect]
     Active Substance: REMIBRUTINIB
     Indication: Product used for unknown indication
     Dosage: 25 MG (TABLET)
     Route: 065

REACTIONS (3)
  - Petechiae [Unknown]
  - Condition aggravated [Unknown]
  - Product dose omission in error [Unknown]
